FAERS Safety Report 18088315 (Version 1)
Quarter: 2020Q3

REPORT INFORMATION
  Report Type: Spontaneous
  Country: DK (occurrence: DK)
  Receive Date: 20200729
  Receipt Date: 20200729
  Transmission Date: 20201103
  Serious: Yes (Hospitalization)
  Sender: FDA-Public Use
  Company Number: NVSC2020DK212401

PATIENT
  Age: 75 Year
  Sex: Male

DRUGS (2)
  1. DICILLIN [Suspect]
     Active Substance: DICLOXACILLIN SODIUM
     Indication: DEVICE RELATED INFECTION
     Dosage: 4000 MG, QD
     Route: 048
     Dates: start: 20200708
  2. METFORMIN ACTAVIS [Concomitant]
     Active Substance: METFORMIN HYDROCHLORIDE
     Indication: TYPE 2 DIABETES MELLITUS
     Dosage: 1000 MG, QD
     Route: 048
     Dates: start: 20140206

REACTIONS (1)
  - Acute kidney injury [Recovered/Resolved]

NARRATIVE: CASE EVENT DATE: 20200713
